FAERS Safety Report 4426530-4 (Version None)
Quarter: 2004Q3

REPORT INFORMATION
  Report Type: 
  Country: None (occurrence: None)
  Receive Date: 20040816
  Receipt Date: 20040809
  Transmission Date: 20050211
  Serious: Yes (Life-Threatening)
  Sender: FDA-Public Use
  Company Number: DE-JNJFOC-20040802486

PATIENT
  Sex: Female
  Weight: 53 kg

DRUGS (2)
  1. ORTHO EVRA [Suspect]
     Indication: CONTRACEPTION
     Route: 062
  2. AARANE [Concomitant]

REACTIONS (5)
  - ACUTE CORONARY SYNDROME [None]
  - ASPARTATE AMINOTRANSFERASE INCREASED [None]
  - C-REACTIVE PROTEIN INCREASED [None]
  - CORONARY ARTERY EMBOLISM [None]
  - TROPONIN I INCREASED [None]
